FAERS Safety Report 16334350 (Version 1)
Quarter: 2019Q2

REPORT INFORMATION
  Report Type: Spontaneous
  Country: BR (occurrence: BR)
  Receive Date: 20190520
  Receipt Date: 20190520
  Transmission Date: 20190711
  Serious: Yes (Life-Threatening, Other)
  Sender: FDA-Public Use
  Company Number: BR-ACELLA PHARMACEUTICALS, LLC-2067226

PATIENT
  Age: 24 Year
  Sex: Male

DRUGS (1)
  1. PHENYTOIN SODIUM. [Suspect]
     Active Substance: PHENYTOIN SODIUM
     Indication: PETIT MAL EPILEPSY

REACTIONS (4)
  - Infection [Recovered/Resolved]
  - Immunoglobulins decreased [Recovered/Resolved]
  - Diarrhoea [Recovered/Resolved]
  - Petit mal epilepsy [Recovered/Resolved]
